FAERS Safety Report 12409428 (Version 2)
Quarter: 2016Q2

REPORT INFORMATION
  Report Type: Report from Study
  Country: BR (occurrence: BR)
  Receive Date: 20160526
  Receipt Date: 20160606
  Transmission Date: 20160815
  Serious: Yes (Hospitalization, Other)
  Sender: FDA-Public Use
  Company Number: ALCN2016BR003646

PATIENT
  Sex: Male
  Weight: 62 kg

DRUGS (1)
  1. TRAVATAN APS [Suspect]
     Active Substance: TRAVOPROST
     Indication: INTRAOCULAR PRESSURE INCREASED
     Dosage: UNK GTT, QHS
     Route: 047
     Dates: start: 2013

REACTIONS (4)
  - Visual field defect [Unknown]
  - Renal disorder [Unknown]
  - Diabetes mellitus [Unknown]
  - Dementia [Unknown]
